FAERS Safety Report 4313474-1 (Version None)
Quarter: 2004Q1

REPORT INFORMATION
  Report Type: 
  Country: None (occurrence: None)
  Receive Date: 20040308
  Receipt Date: 20040226
  Transmission Date: 20041129
  Serious: Yes (Hospitalization)
  Sender: FDA-Public Use
  Company Number: DE-ROCHE-360063

PATIENT
  Sex: Male
  Weight: 65.8 kg

DRUGS (5)
  1. GANCICLOVIR SODIUM [Suspect]
     Indication: RENAL TRANSPLANT
     Route: 048
     Dates: start: 20031224, end: 20031229
  2. GANCICLOVIR SODIUM [Suspect]
     Route: 048
  3. MYCOPHENOLATE MOFETIL [Suspect]
     Indication: RENAL TRANSPLANT
     Route: 048
     Dates: start: 20031223, end: 20031229
  4. MYCOPHENOLATE MOFETIL [Suspect]
     Route: 048
     Dates: start: 20040103, end: 20040114
  5. NEORAL [Suspect]
     Indication: RENAL TRANSPLANT
     Route: 048
     Dates: start: 20031224

REACTIONS (3)
  - BLOOD LACTATE DEHYDROGENASE INCREASED [None]
  - LEUKOPENIA [None]
  - THROMBOCYTOPENIA [None]
